FAERS Safety Report 23191914 (Version 1)
Quarter: 2023Q4

REPORT INFORMATION
  Report Type: Spontaneous
  Country: FR (occurrence: FR)
  Receive Date: 20231116
  Receipt Date: 20231116
  Transmission Date: 20240109
  Serious: Yes (Other)
  Sender: FDA-Public Use
  Company Number: None

PATIENT
  Age: 73 Year
  Sex: Male

DRUGS (4)
  1. CLARITHROMYCIN [Suspect]
     Active Substance: CLARITHROMYCIN
     Indication: Helicobacter infection
     Dosage: 1000 MILLIGRAM DAILY; 500 MG: 1-0-1 TABLET/DAY
     Dates: start: 20230323, end: 20230405
  2. ESOMEPRAZOLE [Suspect]
     Active Substance: ESOMEPRAZOLE
     Indication: Helicobacter infection
     Dosage: 80 MILLIGRAM DAILY; 40 MG: 1-0-1 TABLET/DAY
     Dates: start: 20230323, end: 20230405
  3. AMOXICILLIN [Suspect]
     Active Substance: AMOXICILLIN
     Indication: Helicobacter infection
     Dosage: 3 GRAM DAILY; 1G: 1-1-1 TAB/D
     Dates: start: 20230323, end: 20230405
  4. METRONIDAZOLE [Suspect]
     Active Substance: METRONIDAZOLE
     Indication: Helicobacter infection
     Dosage: 1000 MILLIGRAM DAILY; 500 MG: 1-0-1 TABLET/DAY
     Dates: start: 20230323, end: 20230405

REACTIONS (2)
  - Acute kidney injury [Recovered/Resolved]
  - Hyponatraemia [Recovered/Resolved]

NARRATIVE: CASE EVENT DATE: 20230416
